FAERS Safety Report 14567884 (Version 6)
Quarter: 2018Q4

REPORT INFORMATION
  Report Type: Report from Study
  Country: None (occurrence: ES)
  Receive Date: 20180223
  Receipt Date: 20181205
  Transmission Date: 20190204
  Serious: Yes (Hospitalization)
  Sender: FDA-Public Use
  Company Number: ES-ABBVIE-18P-144-2263883-00

PATIENT
  Age: 72 Year
  Sex: Male

DRUGS (10)
  1. ADIRO [Concomitant]
     Active Substance: ASPIRIN
     Indication: THROMBOSIS PROPHYLAXIS
     Route: 048
     Dates: start: 19980301
  2. DUODOPA [Suspect]
     Active Substance: CARBIDOPA\LEVODOPA
     Dosage: 16 HR/DAY; MD: 8, CD: 2.7, ED 2, EXTRA DOSES: 2/DAY
     Route: 050
     Dates: start: 2017, end: 20171101
  3. SINEMET RETARD [Concomitant]
     Indication: PARKINSON^S DISEASE
     Dosage: 50/200 MG
     Route: 048
     Dates: start: 19970101, end: 20170505
  4. DUODOPA [Suspect]
     Active Substance: CARBIDOPA\LEVODOPA
     Dosage: 16 HR/DAY; MD: 8, CD: 2.8, ED 2, EXTRA DOSES: 3/DAY
     Route: 050
     Dates: start: 20171101
  5. DUODOPA [Suspect]
     Active Substance: CARBIDOPA\LEVODOPA
     Indication: PARKINSON^S DISEASE
     Dosage: TITRATION: 16 HR/DAY; MD: 6, CD: 2.3, ED 2
     Route: 050
     Dates: start: 20170503, end: 20170525
  6. SINEMET RETARD [Concomitant]
     Dosage: 50/200MG
     Route: 048
     Dates: start: 20170506
  7. PERMIXON [Concomitant]
     Active Substance: HERBALS\SAW PALMETTO
     Indication: BENIGN PROSTATIC HYPERPLASIA
     Route: 048
     Dates: start: 20170324
  8. ATORVASTATINA [Concomitant]
     Active Substance: ATORVASTATIN
     Indication: BLOOD CHOLESTEROL INCREASED
     Route: 048
     Dates: start: 20090101
  9. OMEPRAZOL [Concomitant]
     Active Substance: OMEPRAZOLE
     Indication: PROPHYLAXIS
     Route: 048
     Dates: start: 20130101
  10. DUODOPA [Suspect]
     Active Substance: CARBIDOPA\LEVODOPA
     Dosage: 16 HR/DAY; MD: 6, CD: 2.3, ED 2
     Route: 050
     Dates: start: 20170526, end: 2017

REACTIONS (1)
  - Cardiac failure [Recovered/Resolved]

NARRATIVE: CASE EVENT DATE: 20180207
